FAERS Safety Report 19276389 (Version 12)
Quarter: 2021Q4

REPORT INFORMATION
  Report Type: Report from Study
  Country: US (occurrence: US)
  Receive Date: 20210520
  Receipt Date: 20211102
  Transmission Date: 20220303
  Serious: Yes (Hospitalization)
  Sender: FDA-Public Use
  Company Number: US-DSJP-DSU-2021-107730

PATIENT
  Age: 52 Year
  Sex: Female
  Weight: 94.8 kg

DRUGS (7)
  1. PEXIDARTINIB [Suspect]
     Active Substance: PEXIDARTINIB
     Indication: Synovitis
     Dosage: 400 MG, BID
     Route: 048
     Dates: start: 20210427
  2. ALEVE [Concomitant]
     Active Substance: NAPROXEN SODIUM
     Indication: Product used for unknown indication
     Dosage: UNK
     Route: 065
  3. NAPROXEN [Concomitant]
     Active Substance: NAPROXEN
     Indication: Pain
     Dosage: 220 MG, BID (PRN)
     Route: 065
  4. ZYRTEC [Concomitant]
     Active Substance: CETIRIZINE HYDROCHLORIDE
     Indication: Hypersensitivity
     Dosage: 10 MG, QD (PRN)
     Route: 065
  5. FAMOTIDINE [Concomitant]
     Active Substance: FAMOTIDINE
     Indication: Gastrooesophageal reflux disease
     Dosage: 20 MG, NIGHTLY
     Route: 065
  6. GABAPENTIN [Concomitant]
     Active Substance: GABAPENTIN
     Indication: Herpes zoster
     Dosage: 300 MG, TID
     Route: 065
     Dates: start: 20210606
  7. GABAPENTIN [Concomitant]
     Active Substance: GABAPENTIN
     Indication: Pain

REACTIONS (14)
  - Pneumonia aspiration [Recovered/Resolved]
  - Abdominal pain upper [Not Recovered/Not Resolved]
  - Seasonal allergy [Recovered/Resolved]
  - Dysgeusia [Recovered/Resolved]
  - Decreased appetite [Recovered/Resolved]
  - Alopecia [Recovered/Resolved]
  - Pyrexia [Unknown]
  - Rash [Unknown]
  - Herpes zoster [Unknown]
  - White blood cell count decreased [Recovered/Resolved]
  - Hair colour changes [Unknown]
  - Aspartate aminotransferase increased [Unknown]
  - Asthenopia [Unknown]
  - Intraocular pressure increased [Unknown]

NARRATIVE: CASE EVENT DATE: 20210526
